FAERS Safety Report 4969093-7 (Version None)
Quarter: 2006Q2

REPORT INFORMATION
  Report Type: 
  Country: None (occurrence: None)
  Receive Date: 20060405
  Receipt Date: 20060327
  Transmission Date: 20061013
  Serious: Yes (Hospitalization)
  Sender: FDA-Public Use
  Company Number: 223051

PATIENT
  Age: 40 Year
  Sex: Female

DRUGS (3)
  1. AVASTIN [Suspect]
     Indication: BRAIN NEOPLASM
     Dosage: 15 MG/KG, Q3W
     Dates: start: 20050101
  2. PLASMAPHERESIS (PLASMA PHERESIS) [Concomitant]
  3. DILANTIN [Concomitant]

REACTIONS (7)
  - CHOROIDAL INFARCTION [None]
  - DISEASE RECURRENCE [None]
  - GLIOMA [None]
  - HYPERTENSION [None]
  - RETINAL DETACHMENT [None]
  - RETINAL HAEMORRHAGE [None]
  - RETINOPATHY HYPERTENSIVE [None]
